FAERS Safety Report 5224028-7 (Version None)
Quarter: 2007Q1

REPORT INFORMATION
  Report Type: 
  Country: None (occurrence: None)
  Receive Date: 20070130
  Receipt Date: 20070124
  Transmission Date: 20070707
  Serious: Yes (Other)
  Sender: FDA-Public Use
  Company Number: HQWYE428127NOV06

PATIENT
  Sex: Female

DRUGS (1)
  1. TRIQUILAR [Suspect]
     Dosage: UNKNOWN
     Route: 048

REACTIONS (4)
  - ATELECTASIS [None]
  - EMBOLIC PNEUMONIA [None]
  - PLEURISY [None]
  - PULMONARY EMBOLISM [None]
